FAERS Safety Report 12711958 (Version 5)
Quarter: 2022Q1

REPORT INFORMATION
  Report Type: Report from Study
  Country: US (occurrence: US)
  Receive Date: 20160902
  Receipt Date: 20220221
  Transmission Date: 20220423
  Serious: Yes (Hospitalization, Other)
  Sender: FDA-Public Use
  Company Number: US-ARIAD PHARMACEUTICALS, INC-2016US006889

PATIENT
  Sex: Male
  Weight: 83.9 kg

DRUGS (4)
  1. PONATINIB [Suspect]
     Active Substance: PONATINIB
     Indication: Chronic myeloid leukaemia
     Dosage: 15 MILLIGRAM, QD
     Route: 048
     Dates: start: 2013
  2. PONATINIB [Suspect]
     Active Substance: PONATINIB
     Dosage: 45 MILLIGRAM
     Route: 048
  3. PONATINIB [Suspect]
     Active Substance: PONATINIB
     Dosage: 15 MILLIGRAM
     Route: 048
     Dates: start: 201310, end: 20200127
  4. PONATINIB [Suspect]
     Active Substance: PONATINIB
     Dosage: 30 MILLIGRAM
     Route: 048

REACTIONS (7)
  - Pneumonia [Unknown]
  - Peripheral arterial occlusive disease [Not Recovered/Not Resolved]
  - Cardiac valve disease [Unknown]
  - Sepsis [Recovered/Resolved]
  - Blood urine present [Unknown]
  - Nasopharyngitis [Unknown]
  - Infection [Unknown]

NARRATIVE: CASE EVENT DATE: 20190101
